FAERS Safety Report 9379373 (Version 1)
Quarter: 2013Q3

REPORT INFORMATION
  Report Type: Spontaneous
  Country: AT (occurrence: AT)
  Receive Date: 20130702
  Receipt Date: 20130702
  Transmission Date: 20140515
  Serious: Yes (Other)
  Sender: FDA-Public Use
  Company Number: AT-SANOFI-AVENTIS-2013SA063719

PATIENT
  Age: 73 Year
  Sex: Female
  Weight: 75 kg

DRUGS (5)
  1. MULTAQ [Suspect]
     Indication: ATRIAL FIBRILLATION
     Route: 048
     Dates: start: 20130520, end: 20130522
  2. SINTROM [Concomitant]
  3. HYTACAND [Concomitant]
  4. LERCANIDIPINE [Concomitant]
  5. METOHEXAL [Concomitant]

REACTIONS (2)
  - Headache [Recovered/Resolved]
  - Pruritus generalised [Recovered/Resolved]
